FAERS Safety Report 9180184 (Version 3)
Quarter: 2013Q2

REPORT INFORMATION
  Report Type: Spontaneous
  Country: GB (occurrence: US)
  Receive Date: 20130321
  Receipt Date: 20130509
  Transmission Date: 20140414
  Serious: No
  Sender: FDA-Public Use
  Company Number: GB-009507513-1303USA008358

PATIENT
  Age: 43 Year
  Sex: Female
  Weight: 86.17 kg

DRUGS (8)
  1. REBETOL [Suspect]
     Indication: CHRONIC HEPATITIS C
     Dosage: 1200 MG, QD
     Route: 065
     Dates: start: 20120810
  2. REBETOL [Suspect]
     Dosage: 1000 MG, QD
     Route: 065
  3. REBETOL [Suspect]
     Dosage: 800 MG, UNK
     Route: 065
  4. REBETOL [Suspect]
     Dosage: 200 MG, BID
     Route: 048
     Dates: start: 20120810
  5. VICTRELIS [Suspect]
     Indication: CHRONIC HEPATITIS C
     Dosage: 200 MG, TID
     Route: 048
     Dates: start: 20121007
  6. PEGASYS [Suspect]
     Indication: CHRONIC HEPATITIS C
     Dosage: 180 MICROGRAM, QW
     Route: 058
     Dates: start: 20120810
  7. PEGASYS [Suspect]
     Dosage: 135 MICROGRAM, QW
     Route: 065
  8. PEGASYS [Suspect]
     Dosage: 90 MICROGRAM, QW
     Route: 058

REACTIONS (19)
  - Asthenia [Unknown]
  - Platelet count decreased [Unknown]
  - Red blood cell count decreased [Unknown]
  - Full blood count decreased [Unknown]
  - Stomatitis [Unknown]
  - Pain [Unknown]
  - Back pain [Recovering/Resolving]
  - Eye infection [Unknown]
  - Eye disorder [Unknown]
  - Eye inflammation [Not Recovered/Not Resolved]
  - Eye discharge [Unknown]
  - Oral candidiasis [Recovering/Resolving]
  - Dysphagia [Recovering/Resolving]
  - Neutrophil count abnormal [Unknown]
  - Emotional disorder [Unknown]
  - Crying [Unknown]
  - Insomnia [Unknown]
  - Anxiety [Unknown]
  - Medication error [Unknown]
